FAERS Safety Report 18612584 (Version 1)
Quarter: 2020Q4

REPORT INFORMATION
  Report Type: Spontaneous
  Country: FR (occurrence: FR)
  Receive Date: 20201214
  Receipt Date: 20201214
  Transmission Date: 20210114
  Serious: Yes (Hospitalization)
  Sender: FDA-Public Use
  Company Number: FR-MYLANLABS-2020M1100826

PATIENT
  Age: 32 Year
  Sex: Female

DRUGS (2)
  1. COTRIMOXAZOLE [Suspect]
     Active Substance: SULFAMETHOXAZOLE\TRIMETHOPRIM
     Indication: TONSILLITIS
     Dosage: 3 DOSAGE FORM
     Route: 048
     Dates: start: 20201012, end: 20201015
  2. PREDNISOLONE. [Suspect]
     Active Substance: PREDNISOLONE
     Indication: TONSILLITIS
     Dosage: 40 MILLIGRAM
     Route: 048
     Dates: start: 20201012, end: 20201015

REACTIONS (1)
  - Immune thrombocytopenia [Not Recovered/Not Resolved]

NARRATIVE: CASE EVENT DATE: 20201022
